FAERS Safety Report 11949216 (Version 2)
Quarter: 2016Q1

REPORT INFORMATION
  Report Type: Spontaneous
  Country: US (occurrence: US)
  Receive Date: 20160125
  Receipt Date: 20160201
  Transmission Date: 20160526
  Serious: No
  Sender: FDA-Public Use
  Company Number: US-ABBVIE-15K-163-1332758-00

PATIENT
  Age: 51 Year
  Sex: Female

DRUGS (4)
  1. PREDNISONE. [Concomitant]
     Active Substance: PREDNISONE
     Indication: MIXED CONNECTIVE TISSUE DISEASE
  2. HUMIRA [Suspect]
     Active Substance: ADALIMUMAB
     Indication: MIXED CONNECTIVE TISSUE DISEASE
     Route: 065
     Dates: start: 20150112
  3. PLAQUENIL [Concomitant]
     Active Substance: HYDROXYCHLOROQUINE SULFATE
     Indication: MIXED CONNECTIVE TISSUE DISEASE
  4. LEFLUNOMIDE. [Concomitant]
     Active Substance: LEFLUNOMIDE
     Indication: MIXED CONNECTIVE TISSUE DISEASE

REACTIONS (4)
  - Injection site haemorrhage [Recovered/Resolved]
  - Injection site pain [Recovered/Resolved]
  - Wrong technique in product usage process [Recovered/Resolved]
  - Incorrect dose administered [Unknown]

NARRATIVE: CASE EVENT DATE: 20150112
